FAERS Safety Report 14193695 (Version 1)
Quarter: 2017Q4

REPORT INFORMATION
  Report Type: Spontaneous
  Country: US (occurrence: US)
  Receive Date: 20171115
  Receipt Date: 20171115
  Transmission Date: 20180321
  Serious: No
  Sender: FDA-Public Use
  Company Number: US-LUNDBECK-DKLU2029165

PATIENT
  Age: 88 Year
  Sex: Female

DRUGS (1)
  1. NORTHERA [Suspect]
     Active Substance: DROXIDOPA
     Indication: PRODUCT USED FOR UNKNOWN INDICATION
     Route: 065
     Dates: start: 20170330, end: 20170401

REACTIONS (7)
  - Headache [Unknown]
  - Feeling abnormal [Unknown]
  - Dizziness [Unknown]
  - Nausea [Unknown]
  - Tinnitus [Unknown]
  - Blood pressure increased [Unknown]
  - Fatigue [Unknown]

NARRATIVE: CASE EVENT DATE: 20170330
